FAERS Safety Report 9602234 (Version 1)
Quarter: 2013Q4

REPORT INFORMATION
  Report Type: Spontaneous
  Country: PL (occurrence: None)
  Receive Date: 20131003
  Receipt Date: 20131003
  Transmission Date: 20140711
  Serious: Yes (Hospitalization, Other)
  Sender: FDA-Public Use
  Company Number: VAL_02755_2013

PATIENT
  Age: 26 Year
  Sex: Female

DRUGS (3)
  1. METOPROLOL (METOPROLOL-METOPROLOL TARTRATE) [Suspect]
     Indication: VENTRICULAR TACHYCARDIA
     Dosage: DF
  2. METOPROLOL (METOPROLOL-METOPROLOL TARTRATE) [Suspect]
     Indication: SINUS TACHYCARDIA
     Dosage: DF
  3. SOTALOL [Suspect]
     Indication: VENTRICULAR TACHYCARDIA
     Dosage: DF

REACTIONS (6)
  - Ventricular extrasystoles [None]
  - Ventricular tachycardia [None]
  - Exposure during pregnancy [None]
  - Caesarean section [None]
  - Sinus tachycardia [None]
  - Post-traumatic stress disorder [None]
